FAERS Safety Report 12708388 (Version 1)
Quarter: 2016Q3

REPORT INFORMATION
  Report Type: Spontaneous
  Country: US (occurrence: US)
  Receive Date: 20160901
  Receipt Date: 20160901
  Transmission Date: 20161109
  Serious: Yes (Other)
  Sender: FDA-Public Use
  Company Number: US-BAYER-2016-170083

PATIENT
  Age: 32 Year
  Sex: Female

DRUGS (1)
  1. MIRENA [Suspect]
     Active Substance: LEVONORGESTREL
     Indication: CONTRACEPTION
     Dosage: UNK
     Dates: start: 20160830, end: 20160830

REACTIONS (3)
  - Procedural pain [Not Recovered/Not Resolved]
  - Complication of device insertion [None]
  - Uterine perforation [None]

NARRATIVE: CASE EVENT DATE: 20160830
